FAERS Safety Report 14539729 (Version 1)
Quarter: 2018Q1

REPORT INFORMATION
  Report Type: Spontaneous
  Country: US (occurrence: US)
  Receive Date: 20180215
  Receipt Date: 20180215
  Transmission Date: 20180509
  Serious: No
  Sender: FDA-Public Use
  Company Number: None

PATIENT
  Age: 59 Year
  Sex: Female
  Weight: 108 kg

DRUGS (23)
  1. LIPITOR [Concomitant]
     Active Substance: ATORVASTATIN CALCIUM
  2. MUPIROCIN. [Concomitant]
     Active Substance: MUPIROCIN
  3. OMEPRAZOLE. [Concomitant]
     Active Substance: OMEPRAZOLE
  4. TRINTELLIX [Suspect]
     Active Substance: VORTIOXETINE HYDROBROMIDE
     Indication: DEPRESSION
     Dosage: ?          QUANTITY:1 TABLET(S);?
     Route: 048
     Dates: start: 20180110, end: 20180213
  5. CPAP [Concomitant]
     Active Substance: DEVICE
  6. AUBAGIO [Concomitant]
     Active Substance: TERIFLUNOMIDE
  7. CALCIUM [Concomitant]
     Active Substance: CALCIUM
  8. CENTRUM SILVER MULTIVITAMIN [Concomitant]
  9. CARDIZEM [Concomitant]
     Active Substance: DILTIAZEM HYDROCHLORIDE
  10. NEUROTIN [Concomitant]
     Active Substance: GABAPENTIN
  11. LOSARTAN. [Concomitant]
     Active Substance: LOSARTAN
  12. TRAZODONE [Concomitant]
     Active Substance: TRAZODONE HYDROCHLORIDE
  13. IBUPROFEN. [Concomitant]
     Active Substance: IBUPROFEN
  14. RANITIDINE. [Concomitant]
     Active Substance: RANITIDINE
  15. TIZANIDINE. [Concomitant]
     Active Substance: TIZANIDINE
  16. ACETAMINOPHEN. [Concomitant]
     Active Substance: ACETAMINOPHEN
  17. NAPROXEN. [Concomitant]
     Active Substance: NAPROXEN
  18. VITAMIN D [Concomitant]
     Active Substance: CHOLECALCIFEROL
  19. SYNTHROID [Concomitant]
     Active Substance: LEVOTHYROXINE SODIUM
  20. PROVIGIL [Concomitant]
     Active Substance: MODAFINIL
  21. ALLEGRA ALLERGY [Concomitant]
     Active Substance: FEXOFENADINE HYDROCHLORIDE
  22. AMPYRA [Concomitant]
     Active Substance: DALFAMPRIDINE
  23. METFORMIN [Concomitant]
     Active Substance: METFORMIN HYDROCHLORIDE

REACTIONS (1)
  - Dysgeusia [None]

NARRATIVE: CASE EVENT DATE: 20180210
